FAERS Safety Report 5680427-0 (Version None)
Quarter: 2008Q1

REPORT INFORMATION
  Report Type: 
  Country: None (occurrence: None)
  Receive Date: 20080326
  Receipt Date: 20080312
  Transmission Date: 20080703
  Serious: Yes (Hospitalization, Congenital Anomaly)
  Sender: FDA-Public Use
  Company Number: A0681865A

PATIENT
  Sex: Male

DRUGS (7)
  1. PAXIL [Suspect]
     Indication: ANXIETY
     Dates: start: 19960101
  2. PRECARE [Concomitant]
     Dates: start: 19991202
  3. PROPYLTHIOURACIL [Concomitant]
     Dosage: 100MG THREE TIMES PER DAY
     Dates: start: 20000124
  4. CELEXA [Concomitant]
     Dosage: 20MG PER DAY
  5. BUDESONIDE [Concomitant]
  6. STEROID ENEMAS [Concomitant]
  7. M.V.I. [Concomitant]

REACTIONS (20)
  - AORTIC VALVE INCOMPETENCE [None]
  - ASTHENIA [None]
  - ATRIAL SEPTAL DEFECT [None]
  - CARDIAC MURMUR [None]
  - DRUG EXPOSURE DURING PREGNANCY [None]
  - FALLOT'S TETRALOGY [None]
  - FATIGUE [None]
  - HEART DISEASE CONGENITAL [None]
  - MITRAL VALVE INCOMPETENCE [None]
  - NODAL ARRHYTHMIA [None]
  - PATENT DUCTUS ARTERIOSUS [None]
  - PERIPHERAL COLDNESS [None]
  - PULMONARY ARTERY STENOSIS CONGENITAL [None]
  - PULMONARY VALVE INCOMPETENCE [None]
  - RESPIRATORY FAILURE [None]
  - RIGHT ATRIAL HYPERTROPHY [None]
  - RIGHT VENTRICULAR HYPERTROPHY [None]
  - TACHYPNOEA [None]
  - TRICUSPID VALVE INCOMPETENCE [None]
  - VENTRICULAR SEPTAL DEFECT [None]
